FAERS Safety Report 17067706 (Version 1)
Quarter: 2019Q4

REPORT INFORMATION
  Report Type: Spontaneous
  Country: FR (occurrence: FR)
  Receive Date: 20191122
  Receipt Date: 20191122
  Transmission Date: 20200122
  Serious: Yes (Other)
  Sender: FDA-Public Use
  Company Number: FR-BAYER-2019-207208

PATIENT
  Sex: Female

DRUGS (1)
  1. KYLEENA [Suspect]
     Active Substance: LEVONORGESTREL
     Dosage: 20 MCG/24HR, CONT
     Route: 015
     Dates: start: 201905, end: 2019

REACTIONS (4)
  - Depression [Recovering/Resolving]
  - Suicidal ideation [Recovering/Resolving]
  - Negative thoughts [Recovering/Resolving]
  - Bipolar disorder [Recovering/Resolving]

NARRATIVE: CASE EVENT DATE: 2019
